FAERS Safety Report 7730655-5 (Version None)
Quarter: 2011Q3

REPORT INFORMATION
  Report Type: 
  Country: None (occurrence: None)
  Receive Date: 20110906
  Receipt Date: 20110824
  Transmission Date: 20111222
  Serious: Yes (Hospitalization)
  Sender: FDA-Public Use
  Company Number: US-GLAXOSMITHKLINE-A0747334A

PATIENT
  Age: 68 Year
  Sex: Female
  Weight: 93.2 kg

DRUGS (12)
  1. PREVACID [Concomitant]
  2. AVANDARYL [Suspect]
     Indication: DIABETES MELLITUS
     Route: 048
  3. SYNTHROID [Concomitant]
  4. ENALAPRIL MALEATE [Concomitant]
  5. GLYBURIDE [Concomitant]
  6. NORVASC [Concomitant]
  7. AVANDIA [Suspect]
     Indication: TYPE 2 DIABETES MELLITUS
     Dosage: 4MG TWICE PER DAY
     Dates: start: 20040101, end: 20060101
  8. METFORMIN HCL [Concomitant]
  9. FUROSEMIDE [Concomitant]
  10. PLAVIX [Concomitant]
  11. AVALIDE [Concomitant]
  12. CRESTOR [Concomitant]

REACTIONS (9)
  - ILL-DEFINED DISORDER [None]
  - CARDIAC FAILURE [None]
  - DYSPNOEA [None]
  - ASTHENIA [None]
  - CARDIAC DISORDER [None]
  - HYPOAESTHESIA [None]
  - TRANSIENT ISCHAEMIC ATTACK [None]
  - STRESS [None]
  - MYOCARDIAL INFARCTION [None]
